FAERS Safety Report 20662226 (Version 3)
Quarter: 2022Q2

REPORT INFORMATION
  Report Type: Report from Study
  Country: ES (occurrence: ES)
  Receive Date: 20220401
  Receipt Date: 20220414
  Transmission Date: 20220720
  Serious: Yes (Hospitalization)
  Sender: FDA-Public Use
  Company Number: ES-JNJFOC-20220351189

PATIENT
  Age: 32 Year
  Sex: Female

DRUGS (4)
  1. SPRAVATO [Suspect]
     Active Substance: ESKETAMINE
     Indication: Depression
     Dosage: FIRST TWO WEEKS
  2. SPRAVATO [Suspect]
     Active Substance: ESKETAMINE
     Dosage: FOURTH WEEK OF TREATMENT
  3. SPRAVATO [Suspect]
     Active Substance: ESKETAMINE
     Dosage: MAINTENANCE PHASE
  4. LITHIUM [Suspect]
     Active Substance: LITHIUM
     Indication: Product used for unknown indication
     Route: 065

REACTIONS (5)
  - Suicide attempt [Recovered/Resolved]
  - Overdose [Recovering/Resolving]
  - Drug ineffective [Recovering/Resolving]
  - Off label use [Unknown]
  - Product use issue [Unknown]
